FAERS Safety Report 11999787 (Version 19)
Quarter: 2022Q1

REPORT INFORMATION
  Report Type: Other
  Country: CA (occurrence: None)
  Receive Date: 20160204
  Receipt Date: 20220310
  Transmission Date: 20220423
  Serious: Yes (Hospitalization, Other)
  Sender: FDA-Public Use
  Company Number: CA-ROCHE-1618751

PATIENT
  Age: 61 Year
  Sex: Male

DRUGS (23)
  1. RITUXAN [Suspect]
     Active Substance: RITUXIMAB
     Indication: Rheumatoid arthritis
     Dosage: PREVIOUS RITUXAN INFUSION: 25/FEB/2020
     Route: 042
     Dates: start: 20150805
  2. RITUXAN [Suspect]
     Active Substance: RITUXIMAB
     Route: 042
     Dates: start: 20180328, end: 20180328
  3. PLAQUENIL [Suspect]
     Active Substance: HYDROXYCHLOROQUINE SULFATE
     Indication: Product used for unknown indication
     Route: 065
  4. SOLU-MEDROL [Concomitant]
     Active Substance: METHYLPREDNISOLONE SODIUM SUCCINATE
     Indication: Premedication
     Route: 042
     Dates: start: 20150805
  5. DIPHENHYDRAMINE HYDROCHLORIDE [Concomitant]
     Active Substance: DIPHENHYDRAMINE HYDROCHLORIDE
     Route: 048
     Dates: start: 20150805
  6. METHYLPREDNISOLONE [Concomitant]
     Active Substance: METHYLPREDNISOLONE
     Route: 042
     Dates: start: 20150805
  7. ACETAMINOPHEN [Concomitant]
     Active Substance: ACETAMINOPHEN
     Route: 048
     Dates: start: 20150805
  8. PREGABALIN [Concomitant]
     Active Substance: PREGABALIN
  9. ROSUVASTATIN [Concomitant]
     Active Substance: ROSUVASTATIN
  10. ASPIRIN [Concomitant]
     Active Substance: ASPIRIN
  11. PERINDOPRIL [Concomitant]
     Active Substance: PERINDOPRIL
  12. DEXILANT [Concomitant]
     Active Substance: DEXLANSOPRAZOLE
  13. FOLIC ACID [Concomitant]
     Active Substance: FOLIC ACID
  14. PREDNISONE [Concomitant]
     Active Substance: PREDNISONE
  15. ACTONEL [Concomitant]
     Active Substance: RISEDRONATE SODIUM
  16. METHOTREXATE [Concomitant]
     Active Substance: METHOTREXATE
  17. HYDROXYCHLOROQUINE [Concomitant]
     Active Substance: HYDROXYCHLOROQUINE
  18. DOCUSATE [Concomitant]
     Active Substance: DOCUSATE
  19. HYDROMORPHONE [Concomitant]
     Active Substance: HYDROMORPHONE
  20. CALCIUM [Concomitant]
     Active Substance: CALCIUM
  21. CLONAZEPAM [Concomitant]
     Active Substance: CLONAZEPAM
  22. ASPIRIN [Concomitant]
     Active Substance: ASPIRIN
  23. DEXLANSOPRAZOLE [Concomitant]
     Active Substance: DEXLANSOPRAZOLE

REACTIONS (18)
  - Pyrexia [Recovered/Resolved]
  - Fatigue [Recovered/Resolved]
  - White blood cell count decreased [Recovered/Resolved]
  - Immune system disorder [Recovered/Resolved]
  - Drug hypersensitivity [Recovered/Resolved]
  - Infusion related reaction [Recovered/Resolved]
  - Cough [Not Recovered/Not Resolved]
  - Oxygen saturation decreased [Unknown]
  - Blood pressure increased [Unknown]
  - Pneumonia fungal [Recovered/Resolved]
  - Fatigue [Not Recovered/Not Resolved]
  - Nasopharyngitis [Not Recovered/Not Resolved]
  - Pneumonia [Not Recovered/Not Resolved]
  - Blood pressure diastolic increased [Unknown]
  - Blood pressure diastolic abnormal [Unknown]
  - Pain in extremity [Not Recovered/Not Resolved]
  - Oedema [Not Recovered/Not Resolved]
  - Musculoskeletal stiffness [Not Recovered/Not Resolved]

NARRATIVE: CASE EVENT DATE: 20150805
